APPROVED DRUG PRODUCT: DISOPYRAMIDE PHOSPHATE
Active Ingredient: DISOPYRAMIDE PHOSPHATE
Strength: EQ 100MG BASE
Dosage Form/Route: CAPSULE;ORAL
Application: A070138 | Product #001
Applicant: MYLAN PHARMACEUTICALS INC
Approved: Jun 14, 1985 | RLD: No | RS: No | Type: DISCN